FAERS Safety Report 4375997-9 (Version None)
Quarter: 2004Q2

REPORT INFORMATION
  Report Type: 
  Country: None (occurrence: None)
  Receive Date: 20040607
  Receipt Date: 20040525
  Transmission Date: 20050107
  Serious: Yes (Death, Hospitalization, Other)
  Sender: FDA-Public Use
  Company Number: 2004003722

PATIENT
  Sex: Male

DRUGS (1)
  1. ZOLOFT [Suspect]
     Indication: ILL-DEFINED DISORDER
     Dates: end: 20040101

REACTIONS (5)
  - CARDIAC FAILURE [None]
  - HYPONATRAEMIA [None]
  - LYMPHOMA [None]
  - NAUSEA [None]
  - RENAL FAILURE [None]
